FAERS Safety Report 6702030-3 (Version None)
Quarter: 2010Q2

REPORT INFORMATION
  Report Type: 
  Country: None (occurrence: None)
  Receive Date: 20100429
  Receipt Date: 20100420
  Transmission Date: 20101027
  Serious: Yes (Other)
  Sender: FDA-Public Use
  Company Number: FR-PFIZER INC-2010049514

PATIENT
  Sex: Female

DRUGS (1)
  1. VFEND [Suspect]
     Indication: ASPERGILLOSIS

REACTIONS (1)
  - DRUG RESISTANCE [None]
